FAERS Safety Report 10026370 (Version 1)
Quarter: 2014Q1

REPORT INFORMATION
  Report Type: Spontaneous
  Country: US (occurrence: US)
  Receive Date: 20140321
  Receipt Date: 20140321
  Transmission Date: 20141002
  Serious: No
  Sender: FDA-Public Use
  Company Number: US-ALLERGAN-1303696US

PATIENT
  Sex: Male

DRUGS (1)
  1. LUMIGAN [Suspect]
     Indication: PRODUCT USED FOR UNKNOWN INDICATION
     Dosage: PRIOR TO BEDTIME
     Route: 047

REACTIONS (4)
  - Lid sulcus deepened [Unknown]
  - Erythema of eyelid [Unknown]
  - Blepharal pigmentation [Unknown]
  - Iris hyperpigmentation [Unknown]
